FAERS Safety Report 4682965-6 (Version None)
Quarter: 2005Q2

REPORT INFORMATION
  Report Type: 
  Country: None (occurrence: None)
  Receive Date: 20050602
  Receipt Date: 20050323
  Transmission Date: 20051028
  Serious: No
  Sender: FDA-Public Use
  Company Number: USA050393884

PATIENT
  Age: 49 Year
  Sex: Female
  Weight: 46 kg

DRUGS (5)
  1. CYMBALTA [Suspect]
     Indication: DEPRESSION
     Dosage: 60 MG DAY
  2. LAMICTAL [Concomitant]
  3. KLONOPIN [Concomitant]
  4. TRAZODONE [Concomitant]
  5. SYNTHROID [Concomitant]

REACTIONS (5)
  - DIFFICULTY IN WALKING [None]
  - DISORIENTATION [None]
  - DISTURBANCE IN ATTENTION [None]
  - HYPOTENSION [None]
  - NASOPHARYNGITIS [None]
